FAERS Safety Report 4552823-6 (Version None)
Quarter: 2005Q1

REPORT INFORMATION
  Report Type: 
  Country: None (occurrence: None)
  Receive Date: 20050114
  Receipt Date: 20041216
  Transmission Date: 20050727
  Serious: Yes (Hospitalization)
  Sender: FDA-Public Use
  Company Number: TR-ROCHE-389452

PATIENT
  Age: 27 Year
  Sex: Male
  Weight: 63.3 kg

DRUGS (4)
  1. DACLIZUMAB [Suspect]
     Route: 042
     Dates: start: 20040901, end: 20041027
  2. MYCOPHENOLATE MOFETIL [Suspect]
     Route: 048
     Dates: start: 20040901, end: 20041209
  3. CYCLOSPORINE [Suspect]
     Route: 048
     Dates: start: 20040901
  4. STEROID NOS [Suspect]
     Route: 065

REACTIONS (4)
  - CYTOMEGALOVIRUS INFECTION [None]
  - LEUKOPENIA [None]
  - PLATELET COUNT DECREASED [None]
  - PYREXIA [None]
